FAERS Safety Report 23712522 (Version 1)
Quarter: 2024Q2

REPORT INFORMATION
  Report Type: Spontaneous
  Country: US (occurrence: US)
  Receive Date: 20240405
  Receipt Date: 20240405
  Transmission Date: 20240716
  Serious: No
  Sender: FDA-Public Use
  Company Number: US-HALEON-USCH2024016067

PATIENT
  Sex: Male

DRUGS (1)
  1. SENSODYNE SENSITIVITY AND GUM CLEAN AND FRESH [Suspect]
     Active Substance: STANNOUS FLUORIDE
     Indication: Product used for unknown indication
     Dosage: UNK

REACTIONS (3)
  - Lip erythema [Unknown]
  - Oral discomfort [Unknown]
  - Lip pain [Unknown]
